FAERS Safety Report 22270411 (Version 1)
Quarter: 2023Q2

REPORT INFORMATION
  Report Type: Spontaneous
  Country: US (occurrence: None)
  Receive Date: 20230429
  Receipt Date: 20230429
  Transmission Date: 20230722
  Serious: No
  Sender: FDA-Public Use
  Company Number: None

PATIENT
  Age: 37 Year
  Sex: Male
  Weight: 83.25 kg

DRUGS (1)
  1. NICOTINE POLACRILEX [Suspect]
     Active Substance: NICOTINE
     Indication: Smoking cessation therapy

REACTIONS (5)
  - Abdominal discomfort [None]
  - Diarrhoea [None]
  - Product physical issue [None]
  - Therapy change [None]
  - Therapy change [None]

NARRATIVE: CASE EVENT DATE: 20230427
